FAERS Safety Report 20649639 (Version 1)
Quarter: 2022Q1

REPORT INFORMATION
  Report Type: Spontaneous
  Country: US (occurrence: US)
  Receive Date: 20220329
  Receipt Date: 20220329
  Transmission Date: 20220424
  Serious: No
  Sender: FDA-Public Use
  Company Number: US-HISAMITSU-2021-US-026173

PATIENT
  Age: 87 Year
  Sex: Female
  Weight: 41.28 kg

DRUGS (3)
  1. SALONPAS PAIN RELIEF [Suspect]
     Active Substance: MENTHOL\METHYL SALICYLATE
     Indication: Analgesic therapy
     Dosage: APPLIED 3 TO 4 PATCHES ONCE DAILY, LEAVING ON FOR MORE THAN 8 HOURS
     Route: 061
     Dates: start: 20211202, end: 20211205
  2. SALONPAS PAIN RELIEVING GEL-PATCH HOT [Suspect]
     Active Substance: CAPSICUM OLEORESIN\MENTHOL
     Dosage: APPLIED 3 TO 4 PATCHES ONCE DAILY, LEAVING ON FOR MORE THAN 8 HOURS
     Route: 061
     Dates: start: 20211202, end: 20211205
  3. Unspecified dietary supplements [Concomitant]

REACTIONS (2)
  - Drug ineffective [Unknown]
  - Intentional product misuse [Unknown]

NARRATIVE: CASE EVENT DATE: 20211202
